FAERS Safety Report 22370344 (Version 2)
Quarter: 2023Q2

REPORT INFORMATION
  Report Type: Spontaneous
  Country: DE (occurrence: DE)
  Receive Date: 20230526
  Receipt Date: 20230605
  Transmission Date: 20230722
  Serious: Yes (Death, Other)
  Sender: FDA-Public Use
  Company Number: DE-GILEAD-2023-0629256

PATIENT
  Sex: Female

DRUGS (7)
  1. TRODELVY [Suspect]
     Active Substance: SACITUZUMAB GOVITECAN-HZIY
     Indication: Triple negative breast cancer
     Dosage: 10 MG/KG, Q3WK
     Route: 065
  2. CLEMASTINE [Concomitant]
     Active Substance: CLEMASTINE
  3. ACETAMINOPHEN [Concomitant]
     Active Substance: ACETAMINOPHEN
  4. ONDANSETRON [Concomitant]
     Active Substance: ONDANSETRON
  5. DEXAMETHASONE [Concomitant]
     Active Substance: DEXAMETHASONE
  6. APREPITANT [Concomitant]
     Active Substance: APREPITANT
  7. NEUPOGEN [Concomitant]
     Active Substance: FILGRASTIM

REACTIONS (1)
  - Disease progression [Fatal]

NARRATIVE: CASE EVENT DATE: 20221101
